FAERS Safety Report 10119506 (Version 1)
Quarter: 2014Q2

REPORT INFORMATION
  Report Type: Spontaneous
  Country: PE (occurrence: PE)
  Receive Date: 20140425
  Receipt Date: 20140425
  Transmission Date: 20141212
  Serious: Yes (Other)
  Sender: FDA-Public Use
  Company Number: PE-PFIZER INC-2014113853

PATIENT
  Age: 70 Year
  Sex: Female

DRUGS (3)
  1. CELEBREX [Suspect]
     Dosage: UNK
     Route: 048
  2. NAPROXEN [Concomitant]
     Dosage: UNK
     Route: 048
  3. ARCOXIA [Concomitant]
     Dosage: UNK
     Route: 048

REACTIONS (4)
  - Breast cancer [Unknown]
  - Osteoarthritis [Unknown]
  - Gastritis [Unknown]
  - Arthralgia [Unknown]
